FAERS Safety Report 4957469-3 (Version None)
Quarter: 2006Q1

REPORT INFORMATION
  Report Type: 
  Country: None (occurrence: None)
  Receive Date: 20060328
  Receipt Date: 20060328
  Transmission Date: 20060701
  Serious: Yes (Other)
  Sender: FDA-Public Use
  Company Number: None

PATIENT
  Age: 37 Year
  Sex: Female
  Weight: 58.9676 kg

DRUGS (1)
  1. MINOCYCLINE HCL [Suspect]
     Indication: ACNE
     Dosage: ONE CAPSULE TWO TIMES A DAY PO
     Route: 048
     Dates: start: 20060218, end: 20060227

REACTIONS (7)
  - ABDOMINAL DISCOMFORT [None]
  - CHROMATURIA [None]
  - DIZZINESS [None]
  - JOINT RANGE OF MOTION DECREASED [None]
  - LIMB DISCOMFORT [None]
  - LIP DISCOLOURATION [None]
  - TOOTH DISCOLOURATION [None]
